FAERS Safety Report 7732376-1 (Version None)
Quarter: 2011Q3

REPORT INFORMATION
  Report Type: 
  Country: None (occurrence: None)
  Receive Date: 20110906
  Receipt Date: 20110831
  Transmission Date: 20111222
  Serious: Yes (Hospitalization)
  Sender: FDA-Public Use
  Company Number: JP-BAYER-2011-081096

PATIENT
  Age: 84 Year
  Sex: Male

DRUGS (7)
  1. METFORMIN HCL [Concomitant]
     Dosage: UNK
     Route: 048
     Dates: start: 20110801
  2. METFORMIN HCL [Concomitant]
     Indication: DIABETES MELLITUS
     Dosage: UNK
     Route: 048
     Dates: end: 20110819
  3. AMARYL [Concomitant]
     Indication: DIABETES MELLITUS
     Dosage: UNK
     Route: 048
     Dates: end: 20110819
  4. AVELOX [Suspect]
     Indication: PNEUMONIA ASPIRATION
     Dosage: 400 MG, QD
     Route: 048
     Dates: start: 20110817, end: 20110819
  5. BASEN [Concomitant]
     Dosage: UNK
     Route: 048
     Dates: start: 20110801
  6. BASEN [Concomitant]
     Indication: DIABETES MELLITUS
     Dosage: UNK
     Route: 048
     Dates: end: 20110819
  7. AVELOX [Suspect]
     Indication: LUNG INFECTION PSEUDOMONAL

REACTIONS (1)
  - HYPOGLYCAEMIA [None]
